FAERS Safety Report 16465616 (Version 1)
Quarter: 2019Q2

REPORT INFORMATION
  Report Type: Spontaneous
  Country: CN (occurrence: CN)
  Receive Date: 20190621
  Receipt Date: 20190621
  Transmission Date: 20190711
  Serious: Yes (Other)
  Sender: FDA-Public Use
  Company Number: PHHY2019CN140321

PATIENT
  Age: 66 Year
  Sex: Male

DRUGS (11)
  1. CEFOXITIN [Suspect]
     Active Substance: CEFOXITIN SODIUM
     Indication: ANTI-INFECTIVE THERAPY
     Route: 065
  2. FOSFOMYCIN [Suspect]
     Active Substance: FOSFOMYCIN
     Indication: ANTI-INFECTIVE THERAPY
     Dosage: 2 G, Q12H
     Route: 065
     Dates: start: 20171116
  3. TEICOPLANIN [Suspect]
     Active Substance: TEICOPLANIN
     Indication: ANTI-INFECTIVE THERAPY
     Route: 065
  4. VALSARTAN. [Concomitant]
     Active Substance: VALSARTAN
     Indication: HYPERTENSION
     Route: 048
  5. FLUCONAZOLE. [Suspect]
     Active Substance: FLUCONAZOLE
     Indication: ANTI-INFECTIVE THERAPY
     Route: 065
  6. SULPERAZONE [Suspect]
     Active Substance: CEFOPERAZONE SODIUM\SULBACTAM SODIUM
     Indication: ANTI-INFECTIVE THERAPY
     Route: 065
  7. MOXIFLOXACIN. [Suspect]
     Active Substance: MOXIFLOXACIN
     Indication: ANTI-INFECTIVE THERAPY
     Dosage: 0.4 G, QD
     Route: 065
     Dates: start: 20171118, end: 20171123
  8. IMIPENEM AND CILASTATIN [Suspect]
     Active Substance: CILASTATIN SODIUM\IMIPENEM
     Indication: ANTI-INFECTIVE THERAPY
     Dosage: 1 G, Q8H
     Route: 065
     Dates: start: 20171116, end: 20171123
  9. LINEZOLID. [Suspect]
     Active Substance: LINEZOLID
     Indication: ENTEROCOCCAL INFECTION
     Route: 065
  10. PIPERACILLIN+TAZOBACTAM HEXAL [Suspect]
     Active Substance: PIPERACETAZINE\TAZOBACTAM
     Indication: ANTI-INFECTIVE THERAPY
     Route: 065
  11. IMIPENEM AND CILASTATIN [Suspect]
     Active Substance: CILASTATIN SODIUM\IMIPENEM
     Dosage: 1 G, UNK
     Route: 065
     Dates: start: 20171130

REACTIONS (5)
  - Chills [Unknown]
  - Enterococcal infection [Unknown]
  - Klebsiella infection [Unknown]
  - Asthma [Unknown]
  - Pyrexia [Recovered/Resolved]

NARRATIVE: CASE EVENT DATE: 20171107
